FAERS Safety Report 20649582 (Version 1)
Quarter: 2022Q1

REPORT INFORMATION
  Report Type: Spontaneous
  Country: US (occurrence: None)
  Receive Date: 20220329
  Receipt Date: 20220329
  Transmission Date: 20220423
  Serious: Yes (Hospitalization)
  Sender: FDA-Public Use
  Company Number: None

PATIENT
  Sex: Female

DRUGS (8)
  1. SUTENT [Suspect]
     Active Substance: SUNITINIB MALATE
     Indication: Benign renal neoplasm
     Dosage: FREQUENCY : DAILY;?TAKE 1 CAPSULE BY MOUTH DAILY ON DAYS 1-14 OF A 21 DAY CYCLE WITH OR WITHOUT FOOD
     Route: 048
     Dates: start: 20181022
  2. AIRBORNE CHW [Concomitant]
  3. LEVOTHYROXIN TAB 50MCG [Concomitant]
  4. LISINOPRIL [Concomitant]
     Active Substance: LISINOPRIL
  5. MAGNESIUM TAB 27MG [Concomitant]
  6. NICOTROL INH [Concomitant]
  7. SUCRALFATE TAB 1GM [Concomitant]
  8. TRAZODONE [Concomitant]
     Active Substance: TRAZODONE HYDROCHLORIDE

REACTIONS (2)
  - Cardiac operation [None]
  - Therapy interrupted [None]
